FAERS Safety Report 10163724 (Version 1)
Quarter: 2014Q2

REPORT INFORMATION
  Report Type: Report from Study
  Country: US (occurrence: US)
  Receive Date: 20140509
  Receipt Date: 20140509
  Transmission Date: 20141212
  Serious: Yes (Other)
  Sender: FDA-Public Use
  Company Number: US-ABBVIE-14P-163-1232951-00

PATIENT
  Age: 49 Year
  Sex: Female

DRUGS (3)
  1. HUMIRA [Suspect]
     Indication: PSORIATIC ARTHROPATHY
     Dates: start: 201205
  2. SYNTHROID [Concomitant]
     Indication: HYPOTHYROIDISM
  3. CYMBALTA [Concomitant]
     Indication: DEPRESSION

REACTIONS (14)
  - Wound [Not Recovered/Not Resolved]
  - Wound infection staphylococcal [Recovered/Resolved]
  - Psoriasis [Unknown]
  - Myalgia [Unknown]
  - Arthralgia [Unknown]
  - Fatigue [Not Recovered/Not Resolved]
  - Drug effect decreased [Not Recovered/Not Resolved]
  - Oropharyngeal pain [Unknown]
  - Pyrexia [Unknown]
  - Headache [Unknown]
  - Pharyngitis streptococcal [Unknown]
  - Accidental exposure to product [Unknown]
  - Pain [Not Recovered/Not Resolved]
  - Asthenia [Unknown]
